FAERS Safety Report 9759615 (Version 2)
Quarter: 2015Q3

REPORT INFORMATION
  Report Type: Spontaneous
  Country: US (occurrence: US)
  Receive Date: 20131216
  Receipt Date: 20150806
  Transmission Date: 20151125
  Serious: No
  Sender: FDA-Public Use
  Company Number: US-GILEAD-2010-0028215

PATIENT
  Age: 76 Year
  Sex: Female

DRUGS (11)
  1. MIDODRINE [Concomitant]
     Active Substance: MIDODRINE
  2. RANITIDINE [Concomitant]
     Active Substance: RANITIDINE\RANITIDINE HYDROCHLORIDE
  3. LETAIRIS [Suspect]
     Active Substance: AMBRISENTAN
     Indication: PULMONARY ARTERIAL HYPERTENSION
     Route: 048
     Dates: start: 20100226, end: 20100320
  4. MVI [Concomitant]
     Active Substance: VITAMINS
  5. LASIX [Concomitant]
     Active Substance: FUROSEMIDE
  6. PARACETAMOL/HYDROCODONE BITARTRATE [Concomitant]
  7. WARFARIN [Concomitant]
     Active Substance: WARFARIN
  8. TYLENOL [Concomitant]
     Active Substance: ACETAMINOPHEN
  9. KLONOPIN [Concomitant]
     Active Substance: CLONAZEPAM
  10. FLECAINIDE [Concomitant]
     Active Substance: FLECAINIDE
  11. OSCAL + D [Concomitant]

REACTIONS (3)
  - Haemorrhage subepidermal [Recovered/Resolved]
  - Constipation [Recovering/Resolving]
  - Headache [Recovered/Resolved]

NARRATIVE: CASE EVENT DATE: 20100226
